FAERS Safety Report 15221547 (Version 1)
Quarter: 2018Q3

REPORT INFORMATION
  Report Type: Spontaneous
  Country: GB (occurrence: GB)
  Receive Date: 20180731
  Receipt Date: 20180731
  Transmission Date: 20181010
  Serious: Yes (Other)
  Sender: FDA-Public Use
  Company Number: GB-DRREDDYS-GER/UKI/18/0102664

PATIENT
  Age: 49 Year
  Sex: Female
  Weight: 67.58 kg

DRUGS (1)
  1. OMEPRAZOLE. [Suspect]
     Active Substance: OMEPRAZOLE
     Indication: GASTROOESOPHAGEAL REFLUX DISEASE
     Route: 048
     Dates: start: 20180614, end: 20180620

REACTIONS (3)
  - Groin pain [Unknown]
  - Urine flow decreased [Recovered/Resolved]
  - Oedema [Recovered/Resolved]
